FAERS Safety Report 9707112 (Version 1)
Quarter: 2013Q4

REPORT INFORMATION
  Report Type: Spontaneous
  Country: US (occurrence: US)
  Receive Date: 20131125
  Receipt Date: 20131125
  Transmission Date: 20140711
  Serious: No
  Sender: FDA-Public Use
  Company Number: US-PFIZER INC-2013336256

PATIENT
  Sex: Male

DRUGS (1)
  1. LYRICA [Suspect]
     Indication: NEUROPATHY PERIPHERAL
     Dosage: UNK

REACTIONS (9)
  - Dizziness [Unknown]
  - Dry mouth [Unknown]
  - Local swelling [Unknown]
  - Headache [Unknown]
  - Constipation [Unknown]
  - Muscular weakness [Unknown]
  - Myalgia [Unknown]
  - Pollakiuria [Unknown]
  - Drug intolerance [Unknown]
